FAERS Safety Report 8975670 (Version 1)
Quarter: 2012Q4

REPORT INFORMATION
  Report Type: 
  Country: GB (occurrence: GB)
  Receive Date: 20121219
  Receipt Date: 20121219
  Transmission Date: 20130627
  Serious: Yes (Hospitalization)
  Sender: FDA-Public Use
  Company Number: GB-ELI_LILLY_AND_COMPANY-GB201212002432

PATIENT
  Age: 55 Year
  Sex: Female
  Weight: 36.2 kg

DRUGS (2)
  1. GEMZAR [Suspect]
     Indication: PANCREATIC CARCINOMA METASTATIC
     Dosage: 1000 mg/m2, unknown
     Route: 042
     Dates: start: 20121025
  2. METOCLOPRAMIDE [Concomitant]

REACTIONS (1)
  - Cerebral ischaemia [Recovering/Resolving]
